FAERS Safety Report 6713373-1 (Version None)
Quarter: 2010Q2

REPORT INFORMATION
  Report Type: 
  Country: None (occurrence: None)
  Receive Date: 20100506
  Receipt Date: 20100428
  Transmission Date: 20101027
  Serious: Yes (Hospitalization)
  Sender: FDA-Public Use
  Company Number: JP-ROCHE-700562

PATIENT
  Sex: Male
  Weight: 46.7 kg

DRUGS (10)
  1. TOCILIZUMAB [Suspect]
     Indication: PANCREATIC CARCINOMA
     Route: 041
     Dates: start: 20100225, end: 20100407
  2. GEMCITABINE HCL [Suspect]
     Indication: PANCREATIC CARCINOMA
     Dosage: DRUG NMAE : MRA-SC(TOCILIZUMAB)
     Route: 041
     Dates: start: 20100407, end: 20100414
  3. OXINORM [Concomitant]
     Dates: start: 20100205
  4. OXYCONTIN [Concomitant]
     Dates: start: 20100205
  5. LOXOPROFEN SODIUM [Concomitant]
     Route: 048
     Dates: start: 20100128
  6. LANSOPRAZOLE [Concomitant]
     Route: 048
     Dates: start: 20100301
  7. MAGMITT [Concomitant]
     Dosage: PERORAL LIQUID PREPARATION
     Route: 048
     Dates: start: 20100325
  8. LAXOBERON [Concomitant]
     Route: 048
     Dates: start: 20100305
  9. SOLANAX [Concomitant]
     Route: 048
     Dates: start: 20100308
  10. DECADRON [Concomitant]
     Dosage: FREQUENCY: 2
     Route: 048
     Dates: start: 20100424, end: 20100428

REACTIONS (1)
  - DISSEMINATED INTRAVASCULAR COAGULATION [None]
